FAERS Safety Report 17598812 (Version 1)
Quarter: 2020Q1

REPORT INFORMATION
  Report Type: Spontaneous
  Country: US (occurrence: US)
  Receive Date: 20200330
  Receipt Date: 20200330
  Transmission Date: 20200409
  Serious: Yes (Other)
  Sender: FDA-Public Use
  Company Number: US-GLAXOSMITHKLINE-US2020GSK051248

PATIENT
  Age: 32 Year
  Sex: Male

DRUGS (6)
  1. ABACAVIR. [Suspect]
     Active Substance: ABACAVIR
     Indication: HIV INFECTION
     Dosage: UNK
     Dates: start: 201807
  2. DOLUTEGRAVIR [Suspect]
     Active Substance: DOLUTEGRAVIR
     Dosage: UNK
     Dates: start: 2016, end: 201706
  3. DOLUTEGRAVIR [Suspect]
     Active Substance: DOLUTEGRAVIR
     Indication: HIV INFECTION
     Dosage: UNK
     Dates: start: 201807
  4. LAMIVUDINE. [Suspect]
     Active Substance: LAMIVUDINE
     Indication: HIV INFECTION
     Dosage: UNK
     Dates: start: 201807
  5. ABACAVIR. [Suspect]
     Active Substance: ABACAVIR
     Dosage: UNK
     Dates: start: 2016, end: 201706
  6. LAMIVUDINE. [Suspect]
     Active Substance: LAMIVUDINE
     Dosage: UNK
     Dates: start: 2016, end: 201706

REACTIONS (10)
  - Palpitations [Recovering/Resolving]
  - Thyroxine free increased [Recovering/Resolving]
  - Therapy cessation [Unknown]
  - Fatigue [Recovering/Resolving]
  - Thyroid disorder [Recovering/Resolving]
  - Hyperthyroidism [Recovering/Resolving]
  - Immune reconstitution inflammatory syndrome [Recovering/Resolving]
  - Dizziness [Recovering/Resolving]
  - Iodine uptake increased [Unknown]
  - Blood thyroid stimulating hormone decreased [Unknown]

NARRATIVE: CASE EVENT DATE: 201706
